FAERS Safety Report 6044481-9 (Version None)
Quarter: 2009Q1

REPORT INFORMATION
  Report Type: 
  Country: None (occurrence: None)
  Receive Date: 20090114
  Receipt Date: 20090114
  Transmission Date: 20090719
  Serious: No
  Sender: FDA-Public Use
  Company Number: None

PATIENT
  Age: 46 Year
  Sex: Male
  Weight: 95.2554 kg

DRUGS (2)
  1. ZOLPIDEM TARTRATE [Suspect]
     Indication: SLEEP DISORDER
     Dosage: 10MG 1XDAILY PO
     Route: 048
     Dates: start: 20090109, end: 20090112
  2. ZOLPIDEM TARTRATE [Suspect]
     Indication: TINNITUS
     Dosage: 10MG 1XDAILY PO
     Route: 048
     Dates: start: 20090109, end: 20090112

REACTIONS (2)
  - BLOOD PRESSURE INCREASED [None]
  - HEART RATE INCREASED [None]
